FAERS Safety Report 10659191 (Version 1)
Quarter: 2014Q4

REPORT INFORMATION
  Report Type: Spontaneous
  Country: US (occurrence: None)
  Receive Date: 20141216
  Receipt Date: 20141216
  Transmission Date: 20150529
  Serious: Yes (Hospitalization)
  Sender: FDA-Public Use
  Company Number: None

PATIENT
  Age: 73 Year
  Sex: Male
  Weight: 92.4 kg

DRUGS (10)
  1. MAGNESIUM CHLORIDE HEXAHYDRATE [Concomitant]
  2. ABIRATERONE [Concomitant]
     Active Substance: ABIRATERONE
  3. AMLODIPINE [Concomitant]
     Active Substance: AMLODIPINE BESYLATE
  4. KETOCONAZOLE. [Concomitant]
     Active Substance: KETOCONAZOLE
  5. PREDNISONE. [Suspect]
     Active Substance: PREDNISONE
     Indication: PROSTATE CANCER
     Route: 048
     Dates: start: 20140325, end: 20141201
  6. BETAMETHASONE VALERATE. [Concomitant]
     Active Substance: BETAMETHASONE VALERATE
  7. SENNA TABS [Concomitant]
     Active Substance: SENNOSIDES A AND B
  8. LISINOPRIL. [Concomitant]
     Active Substance: LISINOPRIL
  9. PHOSPHA [Concomitant]
  10. IBUPROFEN. [Concomitant]
     Active Substance: IBUPROFEN

REACTIONS (5)
  - Abdominal pain [None]
  - Lobar pneumonia [None]
  - Hypotension [None]
  - Clostridium difficile colitis [None]
  - Colitis ischaemic [None]

NARRATIVE: CASE EVENT DATE: 20141201
